FAERS Safety Report 4848731-3 (Version None)
Quarter: 2005Q4

REPORT INFORMATION
  Report Type: 
  Country: None (occurrence: None)
  Receive Date: 20051208
  Receipt Date: 20051129
  Transmission Date: 20060501
  Serious: Yes (Death, Hospitalization)
  Sender: FDA-Public Use
  Company Number: FR-BRISTOL-MYERS SQUIBB COMPANY-13201082

PATIENT
  Age: 37 Year
  Sex: Male

DRUGS (4)
  1. ABILIFY [Suspect]
     Indication: SCHIZOPHRENIA
     Route: 048
     Dates: start: 20050930
  2. SOLIAN [Suspect]
     Dates: end: 20050930
  3. TERCIAN [Suspect]
     Indication: SCHIZOPHRENIA
     Route: 048
     Dates: start: 20050930, end: 20051002
  4. NOZINAN [Suspect]
     Indication: EXCITABILITY
     Route: 048
     Dates: start: 20051002

REACTIONS (2)
  - ACCIDENTAL DEATH [None]
  - AGITATION [None]
